FAERS Safety Report 8079758-9 (Version None)
Quarter: 2012Q1

REPORT INFORMATION
  Report Type: 
  Country: None (occurrence: None)
  Receive Date: 20120128
  Receipt Date: 20110720
  Transmission Date: 20120608
  Serious: Yes (Hospitalization)
  Sender: FDA-Public Use
  Company Number: US-ABBOTT-11P-163-0840609-00

PATIENT
  Sex: Male
  Weight: 154.36 kg

DRUGS (3)
  1. HUMIRA [Suspect]
     Indication: PSORIASIS
     Route: 058
     Dates: start: 20040101, end: 20110201
  2. UNKNOWN STERIOD [Concomitant]
     Indication: PSORIASIS
     Route: 061
     Dates: start: 20040101
  3. HUMIRA [Suspect]
     Route: 058
     Dates: start: 20110501

REACTIONS (3)
  - DIVERTICULITIS [None]
  - PSORIASIS [None]
  - ABSCESS INTESTINAL [None]
